FAERS Safety Report 7561830-0 (Version None)
Quarter: 2011Q2

REPORT INFORMATION
  Report Type: 
  Country: None (occurrence: None)
  Receive Date: 20110621
  Receipt Date: 20110616
  Transmission Date: 20111010
  Serious: Yes (Hospitalization, Other)
  Sender: FDA-Public Use
  Company Number: US-PFIZER INC-2011069800

PATIENT
  Sex: Female

DRUGS (15)
  1. AMOXICILLIN [Concomitant]
     Indication: ANTIBIOTIC PROPHYLAXIS
     Dosage: UNK
     Dates: start: 20040101, end: 20090101
  2. DOCUSATE SODIUM [Concomitant]
     Indication: LAXATIVE SUPPORTIVE CARE
     Dosage: UNK
     Dates: start: 20080101, end: 20100101
  3. SPIRIVA [Concomitant]
     Indication: CHRONIC OBSTRUCTIVE PULMONARY DISEASE
     Dosage: UNK
     Dates: start: 20070101, end: 20100101
  4. TRAMADOL [Concomitant]
     Indication: MYOFASCIAL PAIN SYNDROME
     Dosage: UNK
     Dates: start: 20040101, end: 20100101
  5. TRAMADOL [Concomitant]
     Indication: BACK PAIN
  6. NASONEX [Concomitant]
     Indication: INFLAMMATION
     Dosage: UNK
     Dates: start: 20080101, end: 20100101
  7. ADVAIR DISKUS 100/50 [Concomitant]
     Indication: CHRONIC OBSTRUCTIVE PULMONARY DISEASE
     Dosage: UNK
     Dates: start: 20070101, end: 20090101
  8. ADVAIR DISKUS 100/50 [Concomitant]
     Indication: ASTHMA
  9. PREDNISONE [Concomitant]
     Indication: INFLAMMATION
     Dosage: UNK
     Dates: start: 20070101, end: 20100101
  10. XOPENEX [Concomitant]
     Indication: ASTHMA
  11. AZITHROMYCIN [Concomitant]
     Indication: ANTIBIOTIC PROPHYLAXIS
     Dosage: UNK
     Dates: start: 20080101, end: 20100101
  12. CHANTIX [Suspect]
     Indication: SMOKING CESSATION THERAPY
     Dosage: STARTER PACK AND CONTINUING MONTH PACK
     Dates: start: 20070801, end: 20100201
  13. XOPENEX [Concomitant]
     Indication: CHRONIC OBSTRUCTIVE PULMONARY DISEASE
     Dosage: UNK
     Dates: start: 20070101, end: 20100101
  14. LEVAQUIN [Concomitant]
     Indication: BRONCHITIS
     Dosage: UNK
     Dates: start: 20070101, end: 20100101
  15. LEVAQUIN [Concomitant]
     Indication: CHRONIC OBSTRUCTIVE PULMONARY DISEASE

REACTIONS (12)
  - BORDERLINE PERSONALITY DISORDER [None]
  - DEPRESSION [None]
  - SUICIDE ATTEMPT [None]
  - INTENTIONAL OVERDOSE [None]
  - RESPIRATORY DISTRESS [None]
  - PANIC ATTACK [None]
  - PNEUMONIA ASPIRATION [None]
  - NIGHTMARE [None]
  - POST-TRAUMATIC STRESS DISORDER [None]
  - MULTIPLE INJURIES [None]
  - AGGRESSION [None]
  - ANXIETY [None]
